FAERS Safety Report 16896556 (Version 1)
Quarter: 2019Q4

REPORT INFORMATION
  Report Type: Spontaneous
  Country: US (occurrence: US)
  Receive Date: 20191008
  Receipt Date: 20191008
  Transmission Date: 20200122
  Serious: No
  Sender: FDA-Public Use
  Company Number: US-TARO-2019TAR00289

PATIENT
  Age: 2 Year
  Sex: Male

DRUGS (1)
  1. LORATADINE ORAL SOLUTION USP 5MG/5ML [Suspect]
     Active Substance: LORATADINE
     Dosage: 5 MG, 1X/DAY
     Dates: start: 201904, end: 201904

REACTIONS (1)
  - Dysphemia [Recovering/Resolving]

NARRATIVE: CASE EVENT DATE: 201904
